FAERS Safety Report 6538947-2 (Version None)
Quarter: 2010Q1

REPORT INFORMATION
  Report Type: 
  Country: None (occurrence: None)
  Receive Date: 20100112
  Receipt Date: 20100105
  Transmission Date: 20100710
  Serious: Yes (Hospitalization, Other)
  Sender: FDA-Public Use
  Company Number: CAP09000304

PATIENT
  Age: 53 Year
  Sex: Female

DRUGS (2)
  1. ACTONEL [Suspect]
     Indication: OSTEOPOROSIS
     Dosage: 35 MG ONCE WEEKLY, ORAL
     Route: 048
     Dates: start: 20060201
  2. CALCIUM WITH VITAMIN D [Concomitant]

REACTIONS (3)
  - ATRIAL FIBRILLATION [None]
  - EMOTIONAL DISTRESS [None]
  - FATIGUE [None]
